FAERS Safety Report 13192338 (Version 1)
Quarter: 2017Q1

REPORT INFORMATION
  Report Type: Spontaneous
  Country: NL (occurrence: NL)
  Receive Date: 20170207
  Receipt Date: 20170207
  Transmission Date: 20170428
  Serious: Yes (Hospitalization, Other)
  Sender: FDA-Public Use
  Company Number: NL-TELIGENT, INC-IGIL20170033

PATIENT
  Age: 61 Year
  Sex: Female
  Weight: 80 kg

DRUGS (2)
  1. GENTAMYCIN [Concomitant]
     Active Substance: GENTAMICIN
     Indication: URINARY TRACT INFECTION
     Route: 042
  2. CEFUROXIME SODIUM. [Suspect]
     Active Substance: CEFUROXIME SODIUM
     Indication: URINARY TRACT INFECTION
     Route: 042

REACTIONS (7)
  - Renal failure [Recovered/Resolved]
  - Depressed level of consciousness [Recovered/Resolved]
  - Bradypnoea [Recovered/Resolved]
  - Nystagmus [Recovered/Resolved]
  - Tremor [Recovered/Resolved]
  - Myoclonus [Recovered/Resolved]
  - Neurotoxicity [Recovered/Resolved]
